FAERS Safety Report 4697074-X (Version None)
Quarter: 2005Q2

REPORT INFORMATION
  Report Type: 
  Country: None (occurrence: None)
  Receive Date: 20050622
  Receipt Date: 20050105
  Transmission Date: 20051028
  Serious: Yes (Disabling)
  Sender: FDA-Public Use
  Company Number: BR-ROCHE-391589

PATIENT
  Age: 60 Year
  Sex: Male
  Weight: 66 kg

DRUGS (2)
  1. CLONAZEPAM [Suspect]
     Indication: ANXIETY
     Route: 048
     Dates: start: 20040515
  2. SERTRALINE HCL [Concomitant]
     Route: 048

REACTIONS (3)
  - DEAFNESS [None]
  - HYPERSENSITIVITY [None]
  - HYPOACUSIS [None]
